FAERS Safety Report 4881526-3 (Version None)
Quarter: 2006Q1

REPORT INFORMATION
  Report Type: 
  Country: None (occurrence: None)
  Receive Date: 20060116
  Receipt Date: 20051209
  Transmission Date: 20060701
  Serious: No
  Sender: FDA-Public Use
  Company Number: AU-GLAXOSMITHKLINE-B0403383A

PATIENT
  Age: 40 Year
  Sex: Female
  Weight: 54 kg

DRUGS (1)
  1. AROPAX [Suspect]
     Indication: DRUG USE FOR UNKNOWN INDICATION
     Dosage: 10MG PER DAY
     Route: 048

REACTIONS (4)
  - CAPILLARY DISORDER [None]
  - CONTUSION [None]
  - HAEMORRHAGE [None]
  - PLATELET COUNT DECREASED [None]
